FAERS Safety Report 7846676-8 (Version None)
Quarter: 2011Q4

REPORT INFORMATION
  Report Type: 
  Country: None (occurrence: None)
  Receive Date: 20111025
  Receipt Date: 20111013
  Transmission Date: 20120403
  Serious: Yes (Hospitalization)
  Sender: FDA-Public Use
  Company Number: PHHO2011US17367

PATIENT
  Sex: Female
  Weight: 61.6 kg

DRUGS (5)
  1. MAGIC MOUTHWASH [Concomitant]
     Indication: MUCOSAL INFLAMMATION
  2. CISPLATIN [Suspect]
     Indication: BILE DUCT CANCER
     Dosage: 20.6 MG, BIW
     Route: 042
     Dates: start: 20110926
  3. GEMCITABINE [Suspect]
     Indication: BILE DUCT CANCER
     Dosage: 990 MG, BIW
     Route: 042
     Dates: start: 20110926
  4. AFINITOR [Suspect]
     Indication: BILE DUCT CANCER
     Dosage: 5 MG,MONDAY,WESNESDAY, FRIDAY FOR 4 WEEKS
     Route: 048
     Dates: start: 20110926
  5. NYSTATIN [Concomitant]
     Indication: MUCOSAL INFLAMMATION

REACTIONS (2)
  - INFECTION [None]
  - CHOLECYSTITIS [None]
